FAERS Safety Report 24168730 (Version 1)
Quarter: 2024Q3

REPORT INFORMATION
  Report Type: Spontaneous
  Country: US (occurrence: US)
  Receive Date: 20240802
  Receipt Date: 20240802
  Transmission Date: 20241017
  Serious: Yes (Hospitalization)
  Sender: SANDOZ
  Company Number: US-SANDOZ-SDZ2024US019346

PATIENT
  Age: 80 Year
  Sex: Male

DRUGS (1)
  1. ZARXIO [Suspect]
     Active Substance: FILGRASTIM-SNDZ
     Indication: Angioimmunoblastic T-cell lymphoma
     Dosage: 300 UG, QD (300 UG ON DAYS 2-7 AND 9-14 OF CHEMO)
     Route: 058
     Dates: start: 20240223

REACTIONS (2)
  - Hospitalisation [Unknown]
  - Malaise [Not Recovered/Not Resolved]

NARRATIVE: CASE EVENT DATE: 20240425
